FAERS Safety Report 24570455 (Version 1)
Quarter: 2024Q4

REPORT INFORMATION
  Report Type: Spontaneous
  Country: CN (occurrence: CN)
  Receive Date: 20241031
  Receipt Date: 20241031
  Transmission Date: 20250114
  Serious: Yes (Hospitalization, Other)
  Sender: NOVO NORDISK
  Company Number: None

PATIENT
  Age: 62 Year
  Sex: Female
  Weight: 59 kg

DRUGS (2)
  1. NORDITROPIN [Suspect]
     Active Substance: SOMATROPIN
     Indication: Gastric cancer
     Dosage: 160 MG, QD
     Route: 042
     Dates: start: 20240927
  2. DISITAMAB VEDOTIN [Concomitant]
     Active Substance: DISITAMAB VEDOTIN
     Indication: Gastric cancer
     Dosage: 110 MG, QD
     Route: 042
     Dates: start: 20240927

REACTIONS (3)
  - Transaminases increased [Recovering/Resolving]
  - Hepatic failure [Unknown]
  - Product use in unapproved indication [Unknown]

NARRATIVE: CASE EVENT DATE: 20240927
